FAERS Safety Report 16735526 (Version 24)
Quarter: 2020Q4

REPORT INFORMATION
  Report Type: Spontaneous
  Country: BR (occurrence: BR)
  Receive Date: 20190823
  Receipt Date: 20201208
  Transmission Date: 20210113
  Serious: Yes (Hospitalization, Other)
  Sender: FDA-Public Use
  Company Number: BR-IPSEN BIOPHARMACEUTICALS, INC.-2019-10921

PATIENT
  Age: 56 Year
  Sex: Female

DRUGS (5)
  1. PREDNISONE. [Concomitant]
     Active Substance: PREDNISONE
     Dosage: HALF TABLET A DAY
     Route: 048
  2. SOMATULINE AUTOGEL [Suspect]
     Active Substance: LANREOTIDE ACETATE
     Indication: PITUITARY TUMOUR
     Route: 058
     Dates: start: 2016
  3. OCTREOTIDE ACETATE. [Suspect]
     Active Substance: OCTREOTIDE ACETATE
     Indication: PRODUCT USED FOR UNKNOWN INDICATION
     Dosage: 1 SYRINGE EACH MONTH
     Route: 065
     Dates: start: 2019
  4. SOMATULINE AUTOGEL [Suspect]
     Active Substance: LANREOTIDE ACETATE
     Indication: OFF LABEL USE
     Route: 058
     Dates: start: 20190514, end: 2019
  5. SOMATULINE AUTOGEL [Suspect]
     Active Substance: LANREOTIDE ACETATE
     Route: 058
     Dates: start: 2019

REACTIONS (31)
  - Syncope [Recovered/Resolved]
  - Dizziness [Recovered/Resolved]
  - Cold sweat [Recovering/Resolving]
  - Asthenia [Recovered/Resolved]
  - Anxiety [Recovered/Resolved]
  - Blood pressure fluctuation [Recovered/Resolved]
  - Product dose omission issue [Unknown]
  - Lung perforation [Recovered/Resolved]
  - Nephrolithiasis [Unknown]
  - Product use complaint [Unknown]
  - Pulmonary oedema [Recovered/Resolved]
  - Neoplasm progression [Unknown]
  - Headache [Recovering/Resolving]
  - Dizziness [Recovered/Resolved]
  - Pain in extremity [Recovered/Resolved]
  - Amnesia [Not Recovered/Not Resolved]
  - Tremor [Recovered/Resolved]
  - Suspected product quality issue [Unknown]
  - Asthenia [Recovered/Resolved]
  - Vomiting [Recovered/Resolved]
  - Nausea [Recovered/Resolved]
  - Product availability issue [Unknown]
  - Product dispensing issue [Unknown]
  - Nausea [Recovered/Resolved]
  - Dysphonia [Unknown]
  - Somnolence [Not Recovered/Not Resolved]
  - Dyspepsia [Recovered/Resolved]
  - Inappropriate schedule of product administration [Unknown]
  - Insulin-like growth factor abnormal [Not Recovered/Not Resolved]
  - Off label use [Unknown]
  - Product dose omission issue [Unknown]

NARRATIVE: CASE EVENT DATE: 2016
